FAERS Safety Report 4941273-6 (Version None)
Quarter: 2006Q1

REPORT INFORMATION
  Report Type: 
  Country: None (occurrence: None)
  Receive Date: 20060313
  Receipt Date: 20050725
  Transmission Date: 20060701
  Serious: Yes (Hospitalization, Disabling)
  Sender: FDA-Public Use
  Company Number: US-MERCK-0507USA03964

PATIENT
  Age: 51 Year
  Sex: Male
  Weight: 91 kg

DRUGS (6)
  1. PAXIL [Concomitant]
     Indication: DEPRESSION
     Route: 048
     Dates: start: 20030217
  2. NEXIUM [Concomitant]
     Route: 048
     Dates: start: 20030221
  3. NITROQUICK [Concomitant]
     Route: 060
     Dates: start: 20030217
  4. VIOXX [Suspect]
     Indication: PAIN IN EXTREMITY
     Route: 048
     Dates: start: 20021118, end: 20021101
  5. VIOXX [Suspect]
     Route: 048
     Dates: start: 20021101, end: 20031201
  6. IBUPROFEN [Concomitant]
     Route: 065

REACTIONS (2)
  - DEPRESSION [None]
  - MYOCARDIAL INFARCTION [None]
